FAERS Safety Report 11727561 (Version 1)
Quarter: 2015Q4

REPORT INFORMATION
  Report Type: Spontaneous
  Country: SE (occurrence: SE)
  Receive Date: 20151112
  Receipt Date: 20151112
  Transmission Date: 20160304
  Serious: Yes (Other)
  Sender: FDA-Public Use
  Company Number: SE-PFIZER INC-2015380876

PATIENT
  Age: 35 Year
  Sex: Male

DRUGS (1)
  1. SALAZOPYRIN EN [Suspect]
     Active Substance: SULFASALAZINE
     Indication: PSORIATIC ARTHROPATHY
     Dosage: UNK
     Dates: end: 20151002

REACTIONS (3)
  - Leukopenia [Recovered/Resolved]
  - Alanine aminotransferase increased [Recovered/Resolved]
  - Anaemia [Recovered/Resolved]

NARRATIVE: CASE EVENT DATE: 20151002
